FAERS Safety Report 23309532 (Version 1)
Quarter: 2023Q4

REPORT INFORMATION
  Report Type: Spontaneous
  Country: LB (occurrence: LB)
  Receive Date: 20231218
  Receipt Date: 20231218
  Transmission Date: 20240110
  Serious: Yes (Hospitalization)
  Sender: FDA-Public Use
  Company Number: LB-SA-SAC20231213000144

PATIENT
  Age: 59 Year
  Sex: Female
  Weight: 56 kg

DRUGS (1)
  1. LOVENOX [Suspect]
     Active Substance: ENOXAPARIN SODIUM
     Indication: Orthopaedic procedure
     Dosage: 4000 UNK, QD
     Route: 058
     Dates: start: 20231122, end: 20231206

REACTIONS (6)
  - Dermatitis allergic [Recovering/Resolving]
  - Condition aggravated [Recovered/Resolved]
  - Swelling face [Recovering/Resolving]
  - Rash macular [Recovering/Resolving]
  - Burning sensation [Recovering/Resolving]
  - Pruritus [Recovering/Resolving]

NARRATIVE: CASE EVENT DATE: 20231206
